FAERS Safety Report 7227855-X (Version None)
Quarter: 2011Q1

REPORT INFORMATION
  Report Type: 
  Country: None (occurrence: None)
  Receive Date: 20110114
  Receipt Date: 20110103
  Transmission Date: 20110831
  Serious: Yes (Other)
  Sender: FDA-Public Use
  Company Number: US-SANOFI-AVENTIS-2010SA064595

PATIENT
  Age: 67 Year
  Sex: Female
  Weight: 112 kg

DRUGS (12)
  1. TYLENOL EXTRA-STRENGTH [Concomitant]
     Route: 048
  2. PLAVIX [Suspect]
     Route: 048
     Dates: start: 20091201
  3. AMLODIPINE BESYLATE [Concomitant]
     Indication: HYPERTENSION
     Dates: start: 20091201
  4. PLAVIX [Suspect]
     Route: 048
  5. RANOLAZINE [Concomitant]
     Indication: ANGINA PECTORIS
     Dates: start: 20091201
  6. TRANXENE [Concomitant]
  7. GLYCERYL TRINITRATE [Concomitant]
  8. ALLEGRA [Concomitant]
     Route: 048
  9. IMDUR [Concomitant]
     Indication: CORONARY ARTERY DISEASE
     Dates: start: 20091201
  10. PEPCID [Concomitant]
     Route: 048
  11. LEVOTHYROXINE [Concomitant]
  12. ZOCOR [Concomitant]
     Dates: start: 20091201

REACTIONS (3)
  - VISUAL FIELD DEFECT [None]
  - PHOTOPSIA [None]
  - VITREOUS DISORDER [None]
